FAERS Safety Report 6295664-4 (Version None)
Quarter: 2009Q3

REPORT INFORMATION
  Report Type: 
  Country: None (occurrence: None)
  Receive Date: 20090803
  Receipt Date: 20090803
  Transmission Date: 20100115
  Serious: Yes (Other)
  Sender: FDA-Public Use
  Company Number: None

PATIENT
  Sex: Female
  Weight: 61.2356 kg

DRUGS (4)
  1. ACTONEL [Suspect]
     Indication: OSTEOPENIA
     Dosage: 150 MG ONE EVERY MONTH P.O.
     Route: 048
     Dates: start: 20081201
  2. ACTONEL [Suspect]
     Indication: OSTEOPENIA
     Dosage: 150 MG ONE EVERY MONTH P.O.
     Route: 048
     Dates: start: 20090101
  3. ACTONEL [Suspect]
     Indication: OSTEOPENIA
     Dosage: 150 MG ONE EVERY MONTH P.O.
     Route: 048
     Dates: start: 20090201
  4. ACTONEL [Suspect]
     Indication: OSTEOPENIA
     Dosage: 150 MG ONE EVERY MONTH P.O.
     Route: 048
     Dates: start: 20090301

REACTIONS (5)
  - ARTHRALGIA [None]
  - HEADACHE [None]
  - LYMPHADENOPATHY [None]
  - MUSCULOSKELETAL PAIN [None]
  - NECK PAIN [None]
